FAERS Safety Report 6636137-6 (Version None)
Quarter: 2010Q1

REPORT INFORMATION
  Report Type: 
  Country: None (occurrence: None)
  Receive Date: 20100309
  Receipt Date: 20100127
  Transmission Date: 20100710
  Serious: Yes (Other)
  Sender: FDA-Public Use
  Company Number: 2010VX000203

PATIENT
  Age: 87 Year
  Sex: Male
  Weight: 180 kg

DRUGS (14)
  1. EFUDEX [Suspect]
     Indication: DRUG USE FOR UNKNOWN INDICATION
  2. WARFARIN SODIUM [Suspect]
     Indication: DRUG USE FOR UNKNOWN INDICATION
     Dosage: 3 MG; QD; PO;  2.5 MG; QD; PO
     Route: 048
     Dates: start: 20090801, end: 20100119
  3. WARFARIN SODIUM [Suspect]
     Indication: DRUG USE FOR UNKNOWN INDICATION
     Dosage: 3 MG; QD; PO;  2.5 MG; QD; PO
     Route: 048
     Dates: start: 20100107, end: 20100120
  4. WARFARIN SODIUM [Suspect]
     Indication: DRUG USE FOR UNKNOWN INDICATION
     Dosage: 3 MG; QD; PO;  2.5 MG; QD; PO
     Route: 048
     Dates: start: 20100126
  5. ADVAIR DISKUS 100/50 [Concomitant]
  6. TIOTROPIUM BROMIDE [Concomitant]
  7. FERROUS GLUCEPTATE [Concomitant]
  8. VITAMIN D [Concomitant]
  9. ASPIRIN [Concomitant]
  10. FUROSEMIDE [Concomitant]
  11. CALCIUM [Concomitant]
  12. RAMIPRIL [Concomitant]
  13. ATENOLOL [Concomitant]
  14. LIPITOR [Concomitant]

REACTIONS (2)
  - EPISTAXIS [None]
  - INTERNATIONAL NORMALISED RATIO INCREASED [None]
